FAERS Safety Report 13791308 (Version 1)
Quarter: 2017Q3

REPORT INFORMATION
  Report Type: Spontaneous
  Country: FR (occurrence: FR)
  Receive Date: 20170725
  Receipt Date: 20170725
  Transmission Date: 20171127
  Serious: Yes (Hospitalization)
  Sender: FDA-Public Use
  Company Number: FR-ASTRAZENECA-2017SE75014

PATIENT
  Age: 822 Month
  Sex: Female

DRUGS (17)
  1. ENDOXAN [Suspect]
     Active Substance: CYCLOPHOSPHAMIDE
     Dosage: 750 MG/M2 IN 2000 4 CYCLES IN TOTAL
     Route: 042
  2. AROMASINE [Suspect]
     Active Substance: EXEMESTANE
     Indication: HORMONE THERAPY
     Route: 042
     Dates: start: 2010, end: 2014
  3. ERIBULIN [Suspect]
     Active Substance: ERIBULIN
     Route: 042
     Dates: start: 2010, end: 2014
  4. PACLITAXEL. [Suspect]
     Active Substance: PACLITAXEL
     Route: 042
     Dates: start: 2010, end: 2014
  5. TAMOXIFEN [Suspect]
     Active Substance: TAMOXIFEN
     Route: 048
     Dates: start: 2000, end: 2003
  6. PALBOCICLIB [Suspect]
     Active Substance: PALBOCICLIB
     Route: 048
     Dates: start: 2017
  7. XELODA [Suspect]
     Active Substance: CAPECITABINE
     Route: 042
     Dates: start: 2008
  8. GEMCITABINE [Suspect]
     Active Substance: GEMCITABINE\GEMCITABINE HYDROCHLORIDE
     Route: 042
     Dates: start: 2017
  9. TASIGNA [Suspect]
     Active Substance: NILOTINIB
     Route: 048
     Dates: start: 2016
  10. FASLODEX [Suspect]
     Active Substance: FULVESTRANT
     Route: 030
     Dates: start: 2010, end: 2014
  11. FASLODEX [Suspect]
     Active Substance: FULVESTRANT
     Route: 030
     Dates: start: 2016
  12. DOXORUBICIN [Suspect]
     Active Substance: DOXORUBICIN
     Dosage: 400 MG/M2 IN 2000  WITH 4 CYCLES
     Route: 042
  13. NAVELBINE [Suspect]
     Active Substance: VINORELBINE TARTRATE
     Route: 048
     Dates: start: 2010, end: 2014
  14. AVASTIN [Suspect]
     Active Substance: BEVACIZUMAB
     Indication: DISEASE RECURRENCE
     Route: 042
     Dates: start: 2007
  15. AROMASINE [Suspect]
     Active Substance: EXEMESTANE
     Indication: HORMONE THERAPY
     Route: 042
     Dates: start: 2009
  16. TAXOTERE [Suspect]
     Active Substance: DOCETAXEL
     Route: 042
     Dates: start: 2008
  17. EVEROLIMUS [Suspect]
     Active Substance: EVEROLIMUS
     Route: 042
     Dates: start: 2010, end: 2014

REACTIONS (1)
  - Acute myeloid leukaemia [Unknown]

NARRATIVE: CASE EVENT DATE: 201702
